FAERS Safety Report 8241340-8 (Version None)
Quarter: 2012Q1

REPORT INFORMATION
  Report Type: 
  Country: None (occurrence: None)
  Receive Date: 20120328
  Receipt Date: 20120321
  Transmission Date: 20120608
  Serious: Yes (Hospitalization)
  Sender: FDA-Public Use
  Company Number: FR-ABBOTT-12P-056-0917377-00

PATIENT
  Sex: Female

DRUGS (14)
  1. MORPHINE SULFATE [Concomitant]
     Indication: PRODUCT USED FOR UNKNOWN INDICATION
     Dosage: IF NEEDED
     Route: 048
     Dates: start: 20110826
  2. INSULINE DETEMIR [Concomitant]
     Indication: PRODUCT USED FOR UNKNOWN INDICATION
     Dosage: 36 IU ON THE MORNING AND 30 IU IN THE EVENING
     Route: 058
     Dates: start: 20100505
  3. AMITRIPTYLINE HCL [Concomitant]
     Indication: ARTHRALGIA
     Dosage: 3 DROPS AT MIDDAY, 7 IN THE EVENING
     Route: 048
     Dates: start: 20111205, end: 20120101
  4. HUMIRA [Suspect]
     Indication: PSORIATIC ARTHROPATHY
     Dosage: RECEIVED ONLY ONE INJECTION
     Route: 058
     Dates: start: 20111209, end: 20111209
  5. SULFATE DE MORPHINE [Concomitant]
     Indication: PRODUCT USED FOR UNKNOWN INDICATION
     Route: 048
     Dates: start: 20110826
  6. METHOTREXATE [Concomitant]
     Indication: PSORIATIC ARTHROPATHY
     Route: 058
     Dates: start: 20110509
  7. SITAGLIPTINE, METFORMINE [Concomitant]
     Indication: TYPE 2 DIABETES MELLITUS
     Dosage: 50MG/1000 MG TWICE DAILY
     Route: 048
     Dates: start: 20110904
  8. ISONIAZID [Concomitant]
     Indication: PRODUCT USED FOR UNKNOWN INDICATION
     Route: 048
  9. ACID FOLIC [Concomitant]
     Indication: PRODUCT USED FOR UNKNOWN INDICATION
     Route: 048
     Dates: end: 20110509
  10. NOVARAPID [Concomitant]
     Indication: TYPE 2 DIABETES MELLITUS
     Dosage: 8 UI WHEN NEEDED
     Route: 058
     Dates: start: 20110927
  11. REPAGLINIDE [Concomitant]
     Indication: TYPE 2 DIABETES MELLITUS
     Route: 048
     Dates: start: 20091124
  12. METFORMIN HCL [Concomitant]
     Indication: TYPE 2 DIABETES MELLITUS
     Route: 048
     Dates: start: 20080627
  13. PREDNISONE TAB [Concomitant]
     Indication: PSORIATIC ARTHROPATHY
     Route: 048
     Dates: start: 20110502
  14. ESOMEPRAZOLE [Concomitant]
     Indication: PRODUCT USED FOR UNKNOWN INDICATION
     Route: 048
     Dates: start: 20110502

REACTIONS (2)
  - ABDOMINAL PAIN [None]
  - COLITIS [None]
